FAERS Safety Report 6083541-3 (Version None)
Quarter: 2009Q1

REPORT INFORMATION
  Report Type: 
  Country: None (occurrence: None)
  Receive Date: 20090219
  Receipt Date: 20090217
  Transmission Date: 20090719
  Serious: Yes (Hospitalization)
  Sender: FDA-Public Use
  Company Number: FR-WYE-G03136109

PATIENT
  Sex: Male
  Weight: 70 kg

DRUGS (3)
  1. ADVIL LIQUI-GELS [Suspect]
     Route: 048
     Dates: start: 20081211, end: 20081215
  2. PARACETAMOL [Suspect]
     Route: 048
     Dates: start: 20081211, end: 20081215
  3. ZITHROMAX [Suspect]
     Indication: PHARYNGOTONSILLITIS
     Route: 048
     Dates: start: 20081211, end: 20081213

REACTIONS (7)
  - ALANINE AMINOTRANSFERASE INCREASED [None]
  - ASPARTATE AMINOTRANSFERASE INCREASED [None]
  - CONDITION AGGRAVATED [None]
  - GINGIVAL PAIN [None]
  - MENINGISM [None]
  - MONOCYTOSIS [None]
  - PHARYNGOTONSILLITIS [None]
